FAERS Safety Report 8208409-5 (Version None)
Quarter: 2012Q1

REPORT INFORMATION
  Report Type: 
  Country: None (occurrence: None)
  Receive Date: 20120314
  Receipt Date: 20120308
  Transmission Date: 20120608
  Serious: Yes (Death)
  Sender: FDA-Public Use
  Company Number: US-ELI_LILLY_AND_COMPANY-US201202004404

PATIENT
  Sex: Female

DRUGS (1)
  1. GEMZAR [Suspect]
     Indication: SARCOMA
     Dosage: UNK
     Route: 042
     Dates: start: 20110101

REACTIONS (3)
  - SARCOMA METASTATIC [None]
  - NEOPLASM PROGRESSION [None]
  - TREATMENT NONCOMPLIANCE [None]
